FAERS Safety Report 18261204 (Version 4)
Quarter: 2020Q4

REPORT INFORMATION
  Report Type: Spontaneous
  Country: IT (occurrence: IT)
  Receive Date: 20200914
  Receipt Date: 20201104
  Transmission Date: 20210113
  Serious: Yes (Life-Threatening, Hospitalization, Other)
  Sender: FDA-Public Use
  Company Number: IT-B.I. PHARMACEUTICALS,INC./RIDGEFIELD-2020-BI-044563

PATIENT
  Age: 79 Year
  Sex: Female

DRUGS (6)
  1. MOBIC [Suspect]
     Active Substance: MELOXICAM
     Indication: INFLAMMATION
     Dosage: 1 TABLET/DAY FOR 10/12 DAYS/CYCLE. BEFORE NEW CYCLE THERAPY TO BE DISCONTINUED FOR 2/3 DAYS
     Route: 065
     Dates: start: 20200621, end: 20200710
  2. PLAQUENIL [HYDROXYCHLOROQUINE PHOSPHATE] [Concomitant]
     Active Substance: HYDROXYCHLOROQUINE DIPHOSPHATE
     Indication: INFLAMMATION
     Route: 065
  3. TORVAST [Concomitant]
     Active Substance: ATORVASTATIN
     Indication: PRODUCT USED FOR UNKNOWN INDICATION
     Route: 065
  4. ENTUMIN [Concomitant]
     Active Substance: CLOTHIAPINE
     Indication: PRODUCT USED FOR UNKNOWN INDICATION
     Route: 065
  5. CARDIOASPIRINA [Concomitant]
     Active Substance: ASPIRIN
     Indication: PRODUCT USED FOR UNKNOWN INDICATION
     Route: 065
  6. SEROQUEL [Concomitant]
     Active Substance: QUETIAPINE FUMARATE
     Indication: PRODUCT USED FOR UNKNOWN INDICATION
     Route: 065

REACTIONS (3)
  - Rectal haemorrhage [Recovered/Resolved with Sequelae]
  - Shock haemorrhagic [Recovered/Resolved with Sequelae]
  - Anaphylactic shock [Unknown]

NARRATIVE: CASE EVENT DATE: 20200715
